FAERS Safety Report 5715367-1 (Version None)
Quarter: 2008Q2

REPORT INFORMATION
  Report Type: 
  Country: None (occurrence: None)
  Receive Date: 20080423
  Receipt Date: 20080411
  Transmission Date: 20081010
  Serious: Yes (Other)
  Sender: FDA-Public Use
  Company Number: GB-PFIZER INC-2008032849

PATIENT
  Sex: Female
  Weight: 82 kg

DRUGS (6)
  1. LINEZOLID [Suspect]
     Indication: DEVICE RELATED INFECTION
     Route: 048
     Dates: start: 20070502, end: 20070531
  2. SIMVASTATIN [Concomitant]
     Route: 048
  3. METFORMIN HCL [Concomitant]
     Route: 048
  4. ACETYLSALICYLIC ACID SRT [Concomitant]
     Route: 048
  5. RAMIPRIL [Concomitant]
     Route: 048
  6. IRON [Concomitant]
     Route: 048

REACTIONS (4)
  - ABDOMINAL PAIN UPPER [None]
  - CHEILITIS [None]
  - DEPRESSION [None]
  - MALAISE [None]
